FAERS Safety Report 17272095 (Version 1)
Quarter: 2020Q1

REPORT INFORMATION
  Report Type: Spontaneous
  Country: GR (occurrence: GR)
  Receive Date: 20200115
  Receipt Date: 20200115
  Transmission Date: 20200409
  Serious: Yes (Other)
  Sender: FDA-Public Use
  Company Number: GR-PFIZER INC-2020018074

PATIENT
  Age: 80 Year
  Sex: Male

DRUGS (3)
  1. TYGACIL [Suspect]
     Active Substance: TIGECYCLINE
     Indication: PNEUMONIA
     Dosage: UNK
     Dates: start: 20191228, end: 20200105
  2. ZYVOXID [Suspect]
     Active Substance: LINEZOLID
     Indication: PNEUMONIA
     Dosage: UNK
     Dates: start: 20191228, end: 20200105
  3. ZAVICEFTA [Suspect]
     Active Substance: AVIBACTAM SODIUM\CEFTAZIDIME
     Indication: PNEUMONIA
     Dosage: UNK
     Dates: start: 20191228, end: 20200105

REACTIONS (4)
  - Jaundice [Not Recovered/Not Resolved]
  - Blood alkaline phosphatase increased [Not Recovered/Not Resolved]
  - Blood bilirubin increased [Not Recovered/Not Resolved]
  - Bilirubin conjugated increased [Not Recovered/Not Resolved]

NARRATIVE: CASE EVENT DATE: 20191228
